FAERS Safety Report 7650959-4 (Version None)
Quarter: 2011Q3

REPORT INFORMATION
  Report Type: 
  Country: None (occurrence: None)
  Receive Date: 20110802
  Receipt Date: 20110802
  Transmission Date: 20111222
  Serious: Yes (Hospitalization)
  Sender: FDA-Public Use
  Company Number: JP-B.I. PHARMACEUTICALS,INC./RIDGEFIELD-2011-BP-17891NB

PATIENT
  Age: 85 Year
  Sex: Female
  Weight: 40 kg

DRUGS (7)
  1. CELECOXIB [Suspect]
     Route: 048
     Dates: start: 20110610, end: 20110628
  2. LANSOPRAZOLE [Concomitant]
     Dosage: 15 MG
     Route: 065
  3. MAGNESIUM SULFATE [Concomitant]
     Route: 065
  4. LOXONIN [Concomitant]
     Route: 065
  5. REBAMIPIDE [Suspect]
     Route: 048
     Dates: start: 20110610, end: 20110628
  6. PRADAXA [Suspect]
     Indication: THROMBOSIS PROPHYLAXIS
     Dosage: 220 MG
     Route: 048
     Dates: start: 20110517, end: 20110628
  7. SLOW-K [Concomitant]
     Dosage: 2400 MG
     Route: 065

REACTIONS (2)
  - JAUNDICE [None]
  - LIVER DISORDER [None]
